FAERS Safety Report 25975874 (Version 1)
Quarter: 2025Q4

REPORT INFORMATION
  Report Type: Spontaneous
  Country: US (occurrence: US)
  Receive Date: 20251029
  Receipt Date: 20251029
  Transmission Date: 20260117
  Serious: Yes (Death, Other)
  Sender: AMGEN
  Company Number: US-AMGEN-USASP2025211533

PATIENT
  Age: 67 Year
  Sex: Female

DRUGS (1)
  1. BEVACIZUMAB [Suspect]
     Active Substance: BEVACIZUMAB
     Indication: Endometrial cancer
     Dosage: UNK
     Route: 065

REACTIONS (5)
  - Death [Fatal]
  - Endometrial cancer [Unknown]
  - Acute kidney injury [Unknown]
  - Glomerular vascular disorder [Unknown]
  - Off label use [Unknown]
